FAERS Safety Report 4428720-3 (Version None)
Quarter: 2004Q3

REPORT INFORMATION
  Report Type: 
  Country: None (occurrence: None)
  Receive Date: 20040818
  Receipt Date: 20040209
  Transmission Date: 20050211
  Serious: No
  Sender: FDA-Public Use
  Company Number: US-BRISTOL-MYERS SQUIBB COMPANY-12499687

PATIENT
  Age: 83 Year
  Sex: Female
  Weight: 59 kg

DRUGS (2)
  1. TEQUIN [Suspect]
     Indication: LUNG DISORDER
     Route: 048
     Dates: start: 20031226, end: 20040101
  2. ANTIGLAUCOMA MEDS [Concomitant]

REACTIONS (1)
  - RASH MACULAR [None]
